FAERS Safety Report 23248926 (Version 1)
Quarter: 2023Q4

REPORT INFORMATION
  Report Type: Spontaneous
  Country: IT (occurrence: IT)
  Receive Date: 20231201
  Receipt Date: 20231201
  Transmission Date: 20240110
  Serious: Yes (Other)
  Sender: FDA-Public Use
  Company Number: IT-MINISAL02-522571

PATIENT
  Age: 41 Year
  Sex: Male

DRUGS (5)
  1. AMLODIPINE [Suspect]
     Active Substance: AMLODIPINE BESYLATE
     Indication: Hypertension
     Dosage: 14 DOSAGE FORM IN TOTAL
     Route: 048
     Dates: start: 20180409, end: 20180409
  2. DOXAZOSIN [Suspect]
     Active Substance: DOXAZOSIN MESYLATE
     Indication: Hypertension
     Dosage: 20 DOSAGE FORM IN TOTAL
     Route: 048
     Dates: start: 20180409, end: 20180409
  3. RAMIPRIL [Suspect]
     Active Substance: RAMIPRIL
     Indication: Hypertension
     Dosage: 14 DOSAGE FORM IN TOTAL
     Route: 048
     Dates: start: 20180409, end: 20180409
  4. FLURAZEPAM HYDROCHLORIDE [Suspect]
     Active Substance: FLURAZEPAM HYDROCHLORIDE
     Indication: Insomnia
     Dosage: 20 DOSAGE FORM IN TOTAL
     Route: 048
     Dates: start: 20180409, end: 20180409
  5. INVEGA [Concomitant]
     Active Substance: PALIPERIDONE
     Indication: Product used for unknown indication
     Dosage: 1 DOSAGE FORM, UNK
     Route: 048

REACTIONS (3)
  - Hypotension [Recovering/Resolving]
  - Cold sweat [Recovering/Resolving]
  - Drug abuse [Unknown]

NARRATIVE: CASE EVENT DATE: 20180409
